FAERS Safety Report 16965738 (Version 1)
Quarter: 2019Q4

REPORT INFORMATION
  Report Type: Report from Study
  Country: US (occurrence: US)
  Receive Date: 20191028
  Receipt Date: 20191028
  Transmission Date: 20200122
  Serious: Yes (Other)
  Sender: FDA-Public Use
  Company Number: US-TEVA-2019-US-1124560

PATIENT
  Sex: Male

DRUGS (2)
  1. AUSTEDO [Suspect]
     Active Substance: DEUTETRABENAZINE
     Indication: TRISMUS
     Route: 065
     Dates: start: 2019
  2. AUSTEDO [Suspect]
     Active Substance: DEUTETRABENAZINE
     Indication: TONGUE MOVEMENT DISTURBANCE

REACTIONS (4)
  - Oromandibular dystonia [Unknown]
  - Dyspnoea [Unknown]
  - Dyskinesia [Unknown]
  - Muscle spasms [Unknown]
